FAERS Safety Report 18360372 (Version 1)
Quarter: 2020Q4

REPORT INFORMATION
  Report Type: Spontaneous
  Country: US (occurrence: US)
  Receive Date: 20201007
  Receipt Date: 20201007
  Transmission Date: 20210114
  Serious: No
  Sender: FDA-Public Use
  Company Number: None

PATIENT
  Age: 93 Year
  Sex: Female
  Weight: 58.51 kg

DRUGS (19)
  1. AMBIEN [Concomitant]
     Active Substance: ZOLPIDEM TARTRATE
  2. FOLIC ACID. [Concomitant]
     Active Substance: FOLIC ACID
  3. KLOR-CON [Concomitant]
     Active Substance: POTASSIUM CHLORIDE
  4. RESTASIS [Concomitant]
     Active Substance: CYCLOSPORINE
  5. TOPROL XL (METOPROLOL SUCCINATE ER) [Concomitant]
  6. AZELASTINE HCL [Concomitant]
     Active Substance: AZELASTINE HYDROCHLORIDE
  7. HYDROCHLORIATHIAZIDE [Concomitant]
  8. RANITIDINE HCL [Concomitant]
     Active Substance: RANITIDINE HYDROCHLORIDE
  9. MECLIZINE HCL [Concomitant]
     Active Substance: MECLIZINE HYDROCHLORIDE
  10. ARIMIDEX [Suspect]
     Active Substance: ANASTROZOLE
     Indication: BREAST CANCER
     Dosage: ?          QUANTITY:1 MG MILLIGRAM(S);?
     Route: 048
     Dates: start: 202001, end: 20200826
  11. ASPIRIN. [Concomitant]
     Active Substance: ASPIRIN
  12. DIOVAN [Concomitant]
     Active Substance: VALSARTAN
  13. LOMOTIL (DIPHENOXYLATE-ATROPINE) [Concomitant]
  14. VITAMIN D3 [Concomitant]
     Active Substance: CHOLECALCIFEROL
  15. VOLTAREN 1% TRANSDERMAL GEL (DICLOFENAC SODIUM) [Concomitant]
  16. CLOBETASOL PROPIONATE. [Concomitant]
     Active Substance: CLOBETASOL PROPIONATE
  17. DICYCLOMINE HCL [Concomitant]
     Active Substance: DICYCLOMINE HYDROCHLORIDE
  18. TYLENOL [Concomitant]
     Active Substance: ACETAMINOPHEN
  19. XANAX [Concomitant]
     Active Substance: ALPRAZOLAM

REACTIONS (2)
  - Uterine leiomyoma [None]
  - Vaginal haemorrhage [None]

NARRATIVE: CASE EVENT DATE: 20200826
